FAERS Safety Report 16698015 (Version 1)
Quarter: 2019Q3

REPORT INFORMATION
  Report Type: Report from Study
  Country: US (occurrence: US)
  Receive Date: 20190813
  Receipt Date: 20190813
  Transmission Date: 20191004
  Serious: Yes (Hospitalization, Other)
  Sender: FDA-Public Use
  Company Number: US-PFIZER INC-2017489288

PATIENT
  Age: 71 Year
  Sex: Female

DRUGS (36)
  1. CELEBREX [Suspect]
     Active Substance: CELECOXIB
     Indication: MULTIPLE SCLEROSIS
     Dosage: UNK
     Dates: start: 20171005
  2. ALEVE [Concomitant]
     Active Substance: NAPROXEN SODIUM
     Dosage: UNK
  3. MAGNESIUM [Concomitant]
     Active Substance: MAGNESIUM
     Dosage: 250 MG, DAILY
     Route: 048
  4. AUBAGIO [Concomitant]
     Active Substance: TERIFLUNOMIDE
     Dosage: 14 MG, DAILY
     Route: 048
  5. KETOCONAZOLE. [Concomitant]
     Active Substance: KETOCONAZOLE
     Dosage: UNK, [1 APPLICATION(S) APPLY ON THE SKIN AS DIRECTED]
     Route: 061
  6. DYMISTA [Concomitant]
     Active Substance: AZELASTINE HYDROCHLORIDE\FLUTICASONE PROPIONATE
     Dosage: UNK
  7. LYRICA [Concomitant]
     Active Substance: PREGABALIN
     Dosage: UNK
  8. PANTOPRAZOLE [Concomitant]
     Active Substance: PANTOPRAZOLE
     Dosage: 40 MG, 2X/DAY
     Route: 048
  9. PROTONIX [Concomitant]
     Active Substance: PANTOPRAZOLE SODIUM
     Dosage: UNK
  10. SOLU-MEDROL [Suspect]
     Active Substance: METHYLPREDNISOLONE SODIUM SUCCINATE
     Dosage: UNK
     Dates: start: 20190724
  11. TYLENOL [Concomitant]
     Active Substance: ACETAMINOPHEN
     Dosage: UNK
  12. CYMBALTA [Concomitant]
     Active Substance: DULOXETINE HYDROCHLORIDE
     Dosage: 20 MG, DAILY
     Route: 048
  13. NEURONTIN [Concomitant]
     Active Substance: GABAPENTIN
     Dosage: UNK
  14. MIRTAZAPINE. [Suspect]
     Active Substance: MIRTAZAPINE
     Indication: APPETITE DISORDER
     Dosage: UNK
     Dates: start: 20171005
  15. GABAPENTIN. [Concomitant]
     Active Substance: GABAPENTIN
     Dosage: 600 MG, 3X/DAY
     Route: 048
  16. POTASSIUM GLUCONATE [Concomitant]
     Active Substance: POTASSIUM GLUCONATE
     Dosage: 550 MG, DAILY
     Route: 048
  17. CLINDAMYCIN PHOSPHATE. [Concomitant]
     Active Substance: CLINDAMYCIN PHOSPHATE
     Dosage: 1 DF, DAILY (1 APPLICATION(S) APPLY ON THE SKIN DAILY)
     Route: 061
  18. CLOBETASOL [Concomitant]
     Active Substance: CLOBETASOL
     Dosage: UNK (1 APPLICATION(S) AS DIRECTED)
  19. FLUTICASONE. [Concomitant]
     Active Substance: FLUTICASONE
     Dosage: 100 UG, DAILY, [50MCG/ACTUATION/2 SQUIRT(S) IN THE NOSE DAILY]
     Route: 045
  20. AMITRIPTYLINEHYDROCHLORIDE [Concomitant]
     Dosage: UNK
  21. VIT D [Concomitant]
     Active Substance: VITAMIN D NOS
     Dosage: UNK
  22. VITAMIN D3 [Concomitant]
     Active Substance: CHOLECALCIFEROL
     Dosage: 2000 IU, DAILY
     Route: 048
  23. HYDROCODONE/ACETAMINOPHEN [Concomitant]
     Active Substance: ACETAMINOPHEN\HYDROCODONE
     Dosage: 1 DF, 2X/DAY, [HYDROCODONE 5 MG, ACETAMINOPHEN 325 MG]
     Route: 048
  24. VITAMIN B12 + FOLIC ACID [Concomitant]
     Dosage: 1 DF, DAILY, [VITAMIN B12 1,000 MCG, FOLIC ACID 400 MCG]
     Route: 060
  25. CILOSTAZOL. [Concomitant]
     Active Substance: CILOSTAZOL
     Dosage: 100 MG, 2X/DAY
     Route: 048
  26. AMPYRA [Suspect]
     Active Substance: DALFAMPRIDINE
     Indication: MULTIPLE SCLEROSIS
     Dosage: 10 MG, 2X/DAY
     Route: 048
     Dates: start: 2015
  27. MECLIZINE [Concomitant]
     Active Substance: MECLIZINE HYDROCHLORIDE
     Dosage: 25 MG, 4X/DAY, [EVERY 6 HOURS AROUND THE CLOCK]
     Route: 048
  28. AZELASTINE. [Concomitant]
     Active Substance: AZELASTINE HYDROCHLORIDE
     Dosage: 2 GTT, 2X/DAY, [1 DROP(S) IN BOTH EYES TWICE A DAY]
     Route: 047
  29. BACLOFEN. [Concomitant]
     Active Substance: BACLOFEN
     Dosage: UNK
  30. HYDROCODONE [Concomitant]
     Active Substance: HYDROCODONE
     Dosage: UNK
  31. ZINC. [Concomitant]
     Active Substance: ZINC
     Dosage: 50 MG, DAILY
     Route: 048
  32. MELOXICAM. [Concomitant]
     Active Substance: MELOXICAM
     Dosage: UNK
  33. CELEBREX [Suspect]
     Active Substance: CELECOXIB
     Dosage: UNK
     Dates: start: 20180701
  34. ZANAFLEX [Concomitant]
     Active Substance: TIZANIDINE HYDROCHLORIDE
     Dosage: UNK UNK, AS NEEDED, [1-2 CAPSULE(S) BY MOUTH AT BEDTIME AS NEEDED (PRN)]
     Route: 048
  35. NAPROXEN SODIUM. [Concomitant]
     Active Substance: NAPROXEN SODIUM
     Dosage: 220 MG, AS NEEDED, [1 CAPSULE(S) BY MOUTH TWICE A DAY AS NEEDED (PRN)]
     Route: 048
  36. PREDNISONE ACETATE [Concomitant]
     Active Substance: PREDNISONE ACETATE
     Dosage: UNK

REACTIONS (14)
  - Dizziness [Recovered/Resolved]
  - Vertigo [Unknown]
  - Eye disorder [Unknown]
  - Ulcer [Unknown]
  - Fatigue [Unknown]
  - Peripheral coldness [Recovering/Resolving]
  - Pulmonary fibrosis [Unknown]
  - Solar lentigo [Unknown]
  - Condition aggravated [Not Recovered/Not Resolved]
  - Hyperventilation [Recovered/Resolved]
  - Joint swelling [Unknown]
  - Fall [Recovered/Resolved]
  - Diplopia [Not Recovered/Not Resolved]
  - Weight increased [Unknown]

NARRATIVE: CASE EVENT DATE: 2016
